FAERS Safety Report 18450732 (Version 3)
Quarter: 2021Q1

REPORT INFORMATION
  Report Type: Spontaneous
  Country: US (occurrence: US)
  Receive Date: 20201102
  Receipt Date: 20210112
  Transmission Date: 20210419
  Serious: Yes (Death, Life-Threatening, Hospitalization, Other)
  Sender: FDA-Public Use
  Company Number: US-ACCORD-206952

PATIENT
  Age: 45 Year
  Sex: Female

DRUGS (1)
  1. GEMCITABINE. [Suspect]
     Active Substance: GEMCITABINE
     Indication: CERVIX CARCINOMA RECURRENT

REACTIONS (6)
  - Haematuria [Fatal]
  - Renal tubular necrosis [Fatal]
  - Off label use [Unknown]
  - Proteinuria [Fatal]
  - Acute kidney injury [Fatal]
  - Thrombotic microangiopathy [Fatal]
